FAERS Safety Report 7156349-5 (Version None)
Quarter: 2010Q4

REPORT INFORMATION
  Report Type: 
  Country: None (occurrence: None)
  Receive Date: 20101214
  Receipt Date: 20101206
  Transmission Date: 20110411
  Serious: Yes (Disabling, Other)
  Sender: FDA-Public Use
  Company Number: US-PFIZER INC-2010128997

PATIENT
  Sex: Female
  Weight: 59.9 kg

DRUGS (20)
  1. LIPITOR [Suspect]
     Indication: HYPERLIPIDAEMIA
     Dosage: 80 MG, 1X/DAY
     Route: 048
     Dates: start: 20100304
  2. LIPITOR [Suspect]
     Dosage: 40 MG, 1X/DAY
  3. LEVOTHYROXINE [Concomitant]
     Indication: THYROID DISORDER
     Dosage: UNK
     Dates: start: 20060901
  4. CELEXA [Concomitant]
     Indication: BIPOLAR DISORDER
     Dosage: 20 MG, DAILY
     Dates: start: 20080529
  5. CELEXA [Concomitant]
     Dates: start: 20080529
  6. ZOLPIDEM [Concomitant]
     Indication: SLEEP DISORDER
     Dosage: UNK
  7. ALBUTEROL [Concomitant]
     Indication: ASTHMA
     Dosage: UNK, AS NEEDED
  8. MONTELUKAST SODIUM [Concomitant]
     Indication: ASTHMA
     Dosage: UNK
     Dates: start: 20060901
  9. PREMARIN [Concomitant]
     Dosage: 625 MG, UNK
  10. PREMARIN [Concomitant]
     Dates: start: 20080512
  11. LASIX [Concomitant]
     Dosage: 40 MG, UNK
  12. MULTI-VITAMINS [Concomitant]
     Dosage: UNK
  13. CITRACAL + D [Concomitant]
     Dosage: UNK
  14. ATRIPLA [Concomitant]
     Dates: start: 20080114
  15. SYNTHROID [Concomitant]
     Dates: start: 20060901
  16. METHADONE HYDROCHLORIDE [Concomitant]
     Dates: start: 20090908
  17. ROXICET [Concomitant]
     Dates: start: 20090804
  18. NABUMETONE [Concomitant]
     Dates: start: 20090831
  19. LOMOTIL [Concomitant]
     Dates: start: 20090831
  20. AMBIEN [Concomitant]
     Dates: start: 20090831

REACTIONS (10)
  - BLOOD CHOLESTEROL INCREASED [None]
  - DIARRHOEA [None]
  - FALL [None]
  - HIV TEST POSITIVE [None]
  - KAWASAKI'S DISEASE [None]
  - MEMORY IMPAIRMENT [None]
  - MUSCLE SPASMS [None]
  - MYALGIA [None]
  - NEUROPATHY PERIPHERAL [None]
  - PAIN [None]
